FAERS Safety Report 8798024 (Version 1)
Quarter: 2012Q4

REPORT INFORMATION
  Report Type: Spontaneous
  Country: US (occurrence: None)
  Receive Date: 20120913
  Receipt Date: 20120913
  Transmission Date: 20130627
  Serious: Yes (Other)
  Sender: FDA-Public Use
  Company Number: FK201202577

PATIENT
  Sex: Female

DRUGS (3)
  1. LEVETIRACETAM [Suspect]
     Indication: CONVULSION
  2. PHENYTOIN (PHENYTOIN) [Concomitant]
  3. PHENOBARBITAL (PHENOBARBITAL) [Concomitant]

REACTIONS (1)
  - Hypothyroidism [None]
